FAERS Safety Report 11104928 (Version 1)
Quarter: 2015Q2

REPORT INFORMATION
  Report Type: Spontaneous
  Country: US (occurrence: US)
  Receive Date: 20150511
  Receipt Date: 20150511
  Transmission Date: 20150821
  Serious: Yes (Hospitalization, Other)
  Sender: FDA-Public Use
  Company Number: US-BAYER-2015-202880

PATIENT
  Age: 67 Year
  Sex: Female

DRUGS (1)
  1. MIRALAX [Suspect]
     Active Substance: POLYETHYLENE GLYCOL 3350
     Dosage: EVERY DAY FOR 5 YEARS

REACTIONS (8)
  - Diverticulitis [Unknown]
  - Intestinal obstruction [Unknown]
  - Abdominal pain upper [Unknown]
  - Diarrhoea [Unknown]
  - Retching [Unknown]
  - Haemorrhoids [Unknown]
  - Product use issue [Unknown]
  - Malaise [Unknown]

NARRATIVE: CASE EVENT DATE: 201411
